FAERS Safety Report 7287937-3 (Version None)
Quarter: 2011Q1

REPORT INFORMATION
  Report Type: 
  Country: None (occurrence: None)
  Receive Date: 20110207
  Receipt Date: 20110207
  Transmission Date: 20110831
  Serious: No
  Sender: FDA-Public Use
  Company Number: None

PATIENT
  Sex: Male
  Weight: 43.9989 kg

DRUGS (4)
  1. CATAPRES-TTS-2 [Suspect]
     Indication: ATTENTION DEFICIT/HYPERACTIVITY DISORDER
     Dosage: .2 PATCH CHANGED Q 2-3 DAYS SKIN
     Route: 062
     Dates: start: 20101222
  2. CATAPRES-TTS-2 [Suspect]
     Indication: ANXIETY
     Dosage: .2 PATCH CHANGED Q 2-3 DAYS SKIN
     Route: 062
     Dates: start: 20101222
  3. CATAPRES-TTS-2 [Suspect]
     Indication: ATTENTION DEFICIT/HYPERACTIVITY DISORDER
     Dosage: .2 PATCH CHANGED Q 2-3 DAYS SKIN
     Route: 062
     Dates: start: 20090101
  4. CATAPRES-TTS-2 [Suspect]
     Indication: ANXIETY
     Dosage: .2 PATCH CHANGED Q 2-3 DAYS SKIN
     Route: 062
     Dates: start: 20090101

REACTIONS (2)
  - PRODUCT ADHESION ISSUE [None]
  - DRUG EFFECT DECREASED [None]
